FAERS Safety Report 6431796-5 (Version None)
Quarter: 2009Q4

REPORT INFORMATION
  Report Type: 
  Country: None (occurrence: None)
  Receive Date: 20091104
  Receipt Date: 20091020
  Transmission Date: 20100525
  Serious: Yes (Hospitalization)
  Sender: FDA-Public Use
  Company Number: 2009SP002685

PATIENT
  Age: 35 Year
  Sex: Female

DRUGS (4)
  1. ALVESCO [Suspect]
     Indication: ASTHMA
     Dosage: 200 UG; QD; INHALATION; 200 UG; QD; INHALATION
     Route: 055
     Dates: start: 20090915, end: 20090916
  2. ALVESCO [Suspect]
     Indication: ASTHMA
     Dosage: 200 UG; QD; INHALATION; 200 UG; QD; INHALATION
     Route: 055
     Dates: start: 20091002
  3. CON MEDS [Concomitant]
  4. PREV MEDS [Concomitant]

REACTIONS (5)
  - BODY TEMPERATURE INCREASED [None]
  - C-REACTIVE PROTEIN INCREASED [None]
  - HAEMORRHAGE SUBCUTANEOUS [None]
  - RASH [None]
  - RASH ERYTHEMATOUS [None]
